FAERS Safety Report 6159220-0 (Version None)
Quarter: 2009Q2

REPORT INFORMATION
  Report Type: 
  Country: None (occurrence: None)
  Receive Date: 20090417
  Receipt Date: 20090405
  Transmission Date: 20091009
  Serious: Yes (Other)
  Sender: FDA-Public Use
  Company Number: US-PFIZER INC-2009190949

PATIENT
  Sex: Female
  Weight: 69.841 kg

DRUGS (7)
  1. CHANTIX [Suspect]
     Indication: SMOKING CESSATION THERAPY
     Dosage: 0.5 MG, 1X/DAY
     Dates: start: 20090327
  2. EFFEXOR [Concomitant]
     Dosage: UNK
  3. KLONOPIN [Concomitant]
     Dosage: UNK
  4. ABILIFY [Concomitant]
     Dosage: UNK
  5. TRAZODONE HYDROCHLORIDE [Concomitant]
     Dosage: UNK
  6. LYRICA [Concomitant]
     Dosage: UNK
  7. ZANAFLEX [Concomitant]
     Dosage: UNK

REACTIONS (3)
  - MANIA [None]
  - SPEECH DISORDER [None]
  - SWOLLEN TONGUE [None]
